FAERS Safety Report 4962916-7 (Version None)
Quarter: 2006Q2

REPORT INFORMATION
  Report Type: 
  Country: None (occurrence: None)
  Receive Date: 20060405
  Receipt Date: 20060203
  Transmission Date: 20061013
  Serious: Yes (Other)
  Sender: FDA-Public Use
  Company Number: US-BRISTOL-MYERS SQUIBB COMPANY-13273149

PATIENT
  Age: 36 Year
  Sex: Female

DRUGS (4)
  1. ERBITUX [Suspect]
     Indication: COLORECTAL CANCER
     Dosage: 4TH DOSE. STOPPED AFTER 6 MINUTES.
     Route: 042
     Dates: start: 20060203, end: 20060203
  2. BENADRYL [Concomitant]
     Indication: PREMEDICATION
     Dates: start: 20060203, end: 20060203
  3. IRINOTECAN [Concomitant]
  4. AVASTIN [Concomitant]

REACTIONS (8)
  - ANXIETY [None]
  - DYSPNOEA [None]
  - HYPERVENTILATION [None]
  - HYPOTENSION [None]
  - INFUSION RELATED REACTION [None]
  - MUSCLE SPASMS [None]
  - OXYGEN SATURATION DECREASED [None]
  - SKIN DISCOLOURATION [None]
